FAERS Safety Report 23251442 (Version 1)
Quarter: 2023Q4

REPORT INFORMATION
  Report Type: Spontaneous
  Country: CN (occurrence: CN)
  Receive Date: 20231201
  Receipt Date: 20231201
  Transmission Date: 20240110
  Serious: Yes (Hospitalization, Other)
  Sender: FDA-Public Use
  Company Number: CN-ViiV Healthcare Limited-CN2023GSK166729

PATIENT

DRUGS (3)
  1. LAMIVUDINE [Suspect]
     Active Substance: LAMIVUDINE
     Indication: HIV infection
     Dosage: UNK
     Dates: start: 2018
  2. TENOFOVIR DISOPROXIL FUMARATE [Suspect]
     Active Substance: TENOFOVIR DISOPROXIL FUMARATE
     Indication: HIV infection
     Dosage: UNK
     Dates: start: 2018, end: 202011
  3. LOPINAVIR\RITONAVIR [Suspect]
     Active Substance: LOPINAVIR\RITONAVIR
     Indication: HIV infection
     Dosage: UNK
     Dates: start: 2018

REACTIONS (24)
  - Myasthenia gravis [Recovering/Resolving]
  - Graves^ disease [Recovering/Resolving]
  - Immune reconstitution inflammatory syndrome [Recovering/Resolving]
  - Diplopia [Recovering/Resolving]
  - Eye pain [Recovering/Resolving]
  - Hyperhidrosis [Recovering/Resolving]
  - Cachexia [Recovering/Resolving]
  - Hyperthyroidism [Recovering/Resolving]
  - Eyelid ptosis [Recovering/Resolving]
  - Eye disorder [Recovering/Resolving]
  - Hyperhidrosis [Recovering/Resolving]
  - Lethargy [Recovering/Resolving]
  - Condition aggravated [Recovering/Resolving]
  - Eye movement disorder [Recovered/Resolved]
  - Osteoporosis [Recovering/Resolving]
  - Asthenia [Recovering/Resolving]
  - Hypoaesthesia [Recovering/Resolving]
  - Movement disorder [Recovering/Resolving]
  - Mastication disorder [Recovered/Resolved]
  - Muscular weakness [Recovered/Resolved]
  - Dysarthria [Recovering/Resolving]
  - Fatigue [Recovering/Resolving]
  - Dysphagia [Recovered/Resolved]
  - Hyperplasia of thymic epithelium [Recovering/Resolving]

NARRATIVE: CASE EVENT DATE: 20201201
